FAERS Safety Report 26071108 (Version 1)
Quarter: 2025Q4

REPORT INFORMATION
  Report Type: Spontaneous
  Country: CN (occurrence: CN)
  Receive Date: 20251120
  Receipt Date: 20251120
  Transmission Date: 20260118
  Serious: Yes (Hospitalization, Other)
  Sender: FERRING
  Company Number: CN-FERRINGPH-2025FE06802

PATIENT

DRUGS (1)
  1. FIRMAGON [Suspect]
     Active Substance: DEGARELIX ACETATE
     Indication: Prostate cancer stage 0
     Dosage: 120 MG, ONCE/SINGLE
     Route: 036
     Dates: start: 20251109, end: 20251109

REACTIONS (4)
  - Abdominal distension [Recovering/Resolving]
  - Injection site pain [Recovering/Resolving]
  - Incorrect route of product administration [Unknown]
  - Incorrect dose administered [Unknown]

NARRATIVE: CASE EVENT DATE: 20251109
